FAERS Safety Report 10763114 (Version 1)
Quarter: 2015Q1

REPORT INFORMATION
  Report Type: Spontaneous
  Country: US (occurrence: US)
  Receive Date: 20150204
  Receipt Date: 20150204
  Transmission Date: 20150721
  Serious: Yes (Life-Threatening, Hospitalization, Disabling)
  Sender: FDA-Public Use
  Company Number: US-009507513-1501USA011612

PATIENT
  Sex: Male

DRUGS (3)
  1. NOXAFIL [Suspect]
     Active Substance: POSACONAZOLE
     Dosage: 300 MG, BID
     Route: 042
  2. NOXAFIL [Suspect]
     Active Substance: POSACONAZOLE
     Indication: FUSARIUM INFECTION
     Dosage: 300 MG, QD
     Route: 042
     Dates: start: 20141229
  3. PROBENECID. [Concomitant]
     Active Substance: PROBENECID

REACTIONS (1)
  - Drug level decreased [Not Recovered/Not Resolved]
